FAERS Safety Report 8361879 (Version 4)
Quarter: 2013Q1

REPORT INFORMATION
  Report Type: Spontaneous
  Country: TR (occurrence: TR)
  Receive Date: 20120130
  Receipt Date: 20130107
  Transmission Date: 20140127
  Serious: Yes (Hospitalization, Other)
  Sender: FDA-Public Use
  Company Number: PHHY2011TR72708

PATIENT
  Sex: Male
  Weight: 45 kg

DRUGS (1)
  1. EXJADE [Suspect]
     Indication: THALASSAEMIA BETA
     Dosage: 1500 MG
     Route: 065
     Dates: start: 20110127, end: 201211

REACTIONS (11)
  - Hypocalcaemia [Unknown]
  - Cardiac failure [Unknown]
  - Ascites [Unknown]
  - Serum ferritin increased [Not Recovered/Not Resolved]
  - Orthopnoea [Unknown]
  - Decreased appetite [Unknown]
  - Palpitations [Unknown]
  - Oedema peripheral [Unknown]
  - Dyspnoea [Unknown]
  - Fatigue [Unknown]
  - Cough [Unknown]
